FAERS Safety Report 4785886-3 (Version None)
Quarter: 2005Q3

REPORT INFORMATION
  Report Type: 
  Country: None (occurrence: None)
  Receive Date: 20050930
  Receipt Date: 20050930
  Transmission Date: 20060218
  Serious: Yes (Death)
  Sender: FDA-Public Use
  Company Number: None

PATIENT
  Sex: Female
  Weight: 77.5651 kg

DRUGS (6)
  1. OXALITPLATIN [Suspect]
     Indication: RECTAL CANCER METASTATIC
     Dosage: 150MG   IV    IV DRIP
     Route: 042
     Dates: start: 20050401, end: 20050423
  2. AVASTIN [Suspect]
     Dosage: 400MG    IV   IV DRIP
     Route: 042
  3. TPN [Concomitant]
  4. INVANZ [Concomitant]
  5. IV FLUIDS [Concomitant]
  6. MORPHINE [Concomitant]

REACTIONS (11)
  - BLOOD ELECTROLYTES ABNORMAL [None]
  - CONFUSIONAL STATE [None]
  - COORDINATION ABNORMAL [None]
  - DISORIENTATION [None]
  - DYSARTHRIA [None]
  - GAZE PALSY [None]
  - LETHARGY [None]
  - METABOLIC DISORDER [None]
  - NAUSEA [None]
  - NERVOUS SYSTEM DISORDER [None]
  - VOMITING [None]
